FAERS Safety Report 10436359 (Version 1)
Quarter: 2014Q3

REPORT INFORMATION
  Report Type: Spontaneous
  Country: TH (occurrence: TH)
  Receive Date: 20140908
  Receipt Date: 20140908
  Transmission Date: 20150326
  Serious: Yes (Other)
  Sender: FDA-Public Use
  Company Number: PHHY2014TH110162

PATIENT
  Age: 27 Year
  Sex: Female

DRUGS (2)
  1. ERYTHROMYCIN. [Interacting]
     Active Substance: ERYTHROMYCIN
  2. CAFFEINE CITRATE,ERGOTAMINE TARTRATE [Suspect]
     Active Substance: CAFFEINE CITRATE\ERGOTAMINE TARTRATE
     Dosage: 2 DF, UNK

REACTIONS (6)
  - Hypoaesthesia [Recovered/Resolved]
  - Peripheral pulse decreased [Recovered/Resolved]
  - Drug interaction [Unknown]
  - Pain in extremity [Recovered/Resolved]
  - Ergot poisoning [Unknown]
  - Peripheral coldness [Recovered/Resolved]
